FAERS Safety Report 6203860-7 (Version None)
Quarter: 2009Q2

REPORT INFORMATION
  Report Type: 
  Country: None (occurrence: None)
  Receive Date: 20090527
  Receipt Date: 20090521
  Transmission Date: 20091009
  Serious: Yes (Death)
  Sender: FDA-Public Use
  Company Number: IT-PFIZER INC-2009216433

PATIENT
  Age: 66 Year

DRUGS (10)
  1. SUNITINIB MALATE [Suspect]
     Indication: RENAL CANCER METASTATIC
     Dosage: 50 MG, 1X/DAY
     Route: 048
     Dates: start: 20060510, end: 20090519
  2. EUTIROX [Concomitant]
     Dosage: UNK
     Route: 048
     Dates: start: 20070307
  3. OXYCONTIN [Concomitant]
     Dosage: UNK
     Route: 048
     Dates: start: 20060315
  4. OMEPRAZOLE [Concomitant]
     Dosage: UNK
     Route: 048
     Dates: start: 20040101
  5. ALLOPURINOL [Concomitant]
     Dosage: UNK
     Route: 048
     Dates: start: 20061210
  6. FUROSEMIDE [Concomitant]
     Dosage: UNK
     Route: 048
     Dates: start: 20070516
  7. ZESTRIL [Concomitant]
     Dosage: UNK
     Route: 048
     Dates: start: 20080103
  8. SINTROM [Concomitant]
     Dosage: UNK
     Route: 048
     Dates: start: 20051015
  9. OMNIC [Concomitant]
     Dosage: UNK
     Route: 048
     Dates: start: 20060802
  10. MULTI-VITAMINS [Concomitant]
     Dosage: UNK
     Route: 048
     Dates: start: 20060705

REACTIONS (1)
  - CHEST PAIN [None]
